FAERS Safety Report 9414860 (Version 8)
Quarter: 2017Q1

REPORT INFORMATION
  Report Type: Report from Study
  Country: BR (occurrence: BR)
  Receive Date: 20130723
  Receipt Date: 20170315
  Transmission Date: 20170429
  Serious: Yes (Other)
  Sender: FDA-Public Use
  Company Number: BR-ROCHE-1236094

PATIENT
  Sex: Female
  Weight: 60 kg

DRUGS (20)
  1. FAMOTIDINE. [Concomitant]
     Active Substance: FAMOTIDINE
  2. LOSARTAN. [Concomitant]
     Active Substance: LOSARTAN
  3. DICLOFENAC SODIUM. [Concomitant]
     Active Substance: DICLOFENAC SODIUM
  4. CALCIUM CARBONATE. [Concomitant]
     Active Substance: CALCIUM CARBONATE
     Indication: OSTEOPENIA
  5. ACTEMRA [Suspect]
     Active Substance: TOCILIZUMAB
     Indication: RHEUMATOID ARTHRITIS
     Route: 042
     Dates: start: 2010, end: 201308
  6. RIVOTRIL [Concomitant]
     Active Substance: CLONAZEPAM
     Indication: LABYRINTHITIS
     Route: 065
  7. LABIRIN [Suspect]
     Active Substance: BETAHISTINE
     Indication: LABYRINTHITIS
     Route: 065
  8. AMLODIPINE BESYLATE. [Concomitant]
     Active Substance: AMLODIPINE BESYLATE
     Indication: HYPERTENSION
  9. RIVOTRIL [Concomitant]
     Active Substance: CLONAZEPAM
     Indication: DIZZINESS
  10. LABIRIN [Suspect]
     Active Substance: BETAHISTINE
     Indication: DIZZINESS
  11. PREDNISOLONE. [Concomitant]
     Active Substance: PREDNISOLONE
     Indication: RHEUMATOID ARTHRITIS
  12. METHOTREXATE. [Concomitant]
     Active Substance: METHOTREXATE
     Indication: RHEUMATOID ARTHRITIS
     Route: 065
  13. RIVOTRIL [Concomitant]
     Active Substance: CLONAZEPAM
     Indication: TINNITUS
     Route: 065
  14. KETOPROFEN CREME [Concomitant]
  15. FLUOXETINE [Concomitant]
     Active Substance: FLUOXETINE HYDROCHLORIDE
  16. PREGABALIN. [Concomitant]
     Active Substance: PREGABALIN
     Indication: FIBROMYALGIA
  17. VALSARTAN HCT [Concomitant]
     Active Substance: HYDROCHLOROTHIAZIDE\VALSARTAN
     Indication: HYPERTENSION
     Route: 065
  18. RANITIDINE. [Concomitant]
     Active Substance: RANITIDINE
  19. CHLOROQUINE. [Concomitant]
     Active Substance: CHLOROQUINE
  20. MABTHERA [Suspect]
     Active Substance: RITUXIMAB
     Indication: RHEUMATOID ARTHRITIS
     Dosage: SUBSEQUENT DOSES ON 15/AUG/2013, 13/FEB/2014, 17/MAR/2014, 09/SEP/2014, 23-SEP-2014.?LAST INFUSION O
     Route: 042
     Dates: start: 20130301

REACTIONS (24)
  - Spinal pain [Not Recovered/Not Resolved]
  - Sluggishness [Unknown]
  - Leukocytosis [Recovering/Resolving]
  - Hypoacusis [Unknown]
  - Musculoskeletal pain [Not Recovered/Not Resolved]
  - Blood test abnormal [Unknown]
  - Urine analysis abnormal [Unknown]
  - Therapeutic response decreased [Unknown]
  - Arthralgia [Not Recovered/Not Resolved]
  - Rheumatoid arthritis [Recovering/Resolving]
  - Cholelithiasis [Unknown]
  - Episcleritis [Not Recovered/Not Resolved]
  - Pain [Not Recovered/Not Resolved]
  - Rheumatoid factor increased [Unknown]
  - Pain in jaw [Not Recovered/Not Resolved]
  - C-reactive protein increased [Unknown]
  - Dyspnoea [Recovering/Resolving]
  - Inner ear disorder [Not Recovered/Not Resolved]
  - Polyarthritis [Unknown]
  - Ear infection [Recovered/Resolved with Sequelae]
  - Bone pain [Not Recovered/Not Resolved]
  - Red blood cell sedimentation rate increased [Unknown]
  - Ear pain [Not Recovered/Not Resolved]
  - Pain in extremity [Not Recovered/Not Resolved]

NARRATIVE: CASE EVENT DATE: 2014
